FAERS Safety Report 16925392 (Version 5)
Quarter: 2022Q3

REPORT INFORMATION
  Report Type: Spontaneous
  Country: JP (occurrence: JP)
  Receive Date: 20191016
  Receipt Date: 20220713
  Transmission Date: 20221026
  Serious: Yes (Life-Threatening, Hospitalization, Other)
  Sender: FDA-Public Use
  Company Number: JP-GSKNCCC-CASE-00776690

PATIENT

DRUGS (6)
  1. ZANTAC [Suspect]
     Active Substance: RANITIDINE HYDROCHLORIDE
     Indication: Gastrooesophageal reflux disease
     Dosage: 150 MG, QD (AT BEDTIME)
     Route: 048
     Dates: start: 20120113, end: 20191009
  2. RISPERDAL TABLETS [Concomitant]
     Indication: Schizophrenia
     Dosage: 4 MG, 1D
     Route: 048
     Dates: start: 20061116
  3. AKINETON [Concomitant]
     Active Substance: BIPERIDEN HYDROCHLORIDE
     Indication: Parkinsonism
     Dosage: 3 MG, 1D (1MG, 1 TABLET AFTER BREAKFAST AND 1MG, 2 TABLETS AT BEDTIME)
     Route: 048
     Dates: start: 20061116
  4. ABILIFY [Concomitant]
     Active Substance: ARIPIPRAZOLE
     Indication: Schizophrenia
     Dosage: 12 MG, 1D
     Route: 048
     Dates: start: 20120323
  5. LENDORMIN TABLETS [Concomitant]
     Indication: Insomnia
     Dosage: 0.25 MG, QD (AT BEDTIME)
     Route: 048
     Dates: start: 20061116
  6. ZOLPIDEM TARTRATE [Concomitant]
     Active Substance: ZOLPIDEM TARTRATE
     Dosage: 4 MG, QD (AT BEDTIME)

REACTIONS (3)
  - Oropharyngeal cancer [Unknown]
  - Squamous cell carcinoma [Unknown]
  - Metastases to lymph nodes [Unknown]

NARRATIVE: CASE EVENT DATE: 20140301
